FAERS Safety Report 19953801 (Version 2)
Quarter: 2021Q4

REPORT INFORMATION
  Report Type: Spontaneous
  Country: IQ (occurrence: IQ)
  Receive Date: 20211014
  Receipt Date: 20211109
  Transmission Date: 20220303
  Serious: Yes (Disabling, Other)
  Sender: FDA-Public Use
  Company Number: IQ-MYLANLABS-2021M1070580

PATIENT
  Age: 47 Year
  Sex: Female
  Weight: 78 kg

DRUGS (6)
  1. LEVOFLOXACIN [Suspect]
     Active Substance: LEVOFLOXACIN
     Indication: Lower respiratory tract infection
     Dosage: 500 MILLIGRAM, QD
     Route: 048
     Dates: start: 20210715, end: 20210720
  2. NEXIUM                             /01479302/ [Concomitant]
     Indication: Abdominal discomfort
     Dosage: 40 MILLIGRAM, QD
     Route: 048
     Dates: start: 20210715, end: 20210801
  3. AIRCOMB [Concomitant]
     Indication: Bronchospasm
     Dosage: UNK, QD
     Route: 048
     Dates: start: 20210715, end: 20210730
  4. METFORMIN HYDROCHLORIDE\VILDAGLIPTIN [Concomitant]
     Active Substance: METFORMIN HYDROCHLORIDE\VILDAGLIPTIN
     Indication: Diabetes mellitus
     Dosage: UNK, BID
     Route: 048
  5. AMIODARONE HYDROCHLORIDE [Concomitant]
     Active Substance: AMIODARONE HYDROCHLORIDE
     Indication: Arrhythmia
     Dosage: UNK, QD
     Route: 048
  6. ASPIRIN                            /00002701/ [Concomitant]
     Indication: Prophylaxis
     Dosage: 100 MILLIGRAM, QD
     Route: 048

REACTIONS (1)
  - White blood cell count increased [Recovered/Resolved]

NARRATIVE: CASE EVENT DATE: 20210715
